FAERS Safety Report 10021512 (Version 1)
Quarter: 2014Q1

REPORT INFORMATION
  Report Type: Spontaneous
  Country: US (occurrence: US)
  Receive Date: 20140319
  Receipt Date: 20140319
  Transmission Date: 20141002
  Serious: No
  Sender: FDA-Public Use
  Company Number: US-009507513-1403USA008633

PATIENT
  Age: 23 Year
  Sex: Female

DRUGS (1)
  1. NEXPLANON [Suspect]
     Indication: CONTRACEPTION
     Dosage: 68 MG, 1 ROD
     Route: 059
     Dates: start: 20140210

REACTIONS (3)
  - Vaginal haemorrhage [Not Recovered/Not Resolved]
  - Tremor [Not Recovered/Not Resolved]
  - Nervousness [Not Recovered/Not Resolved]
